FAERS Safety Report 15035210 (Version 3)
Quarter: 2018Q4

REPORT INFORMATION
  Report Type: Spontaneous
  Country: JP (occurrence: JP)
  Receive Date: 20180620
  Receipt Date: 20181228
  Transmission Date: 20190204
  Serious: Yes (Life-Threatening, Other)
  Sender: FDA-Public Use
  Company Number: JP-009507513-1806JPN001602J

PATIENT
  Age: 8 Decade
  Sex: Male

DRUGS (2)
  1. CUBICIN [Suspect]
     Active Substance: DAPTOMYCIN
     Indication: WOUND INFECTION STAPHYLOCOCCAL
     Dosage: UNK MILLIGRAM
     Route: 041
     Dates: start: 20180529, end: 20180622
  2. VANCOMYCIN [Concomitant]
     Active Substance: VANCOMYCIN
     Indication: WOUND INFECTION STAPHYLOCOCCAL
     Dosage: UNK
     Route: 065
     Dates: start: 20180509

REACTIONS (2)
  - Cerebral haemorrhage [Unknown]
  - Delirium [Unknown]

NARRATIVE: CASE EVENT DATE: 2018
